FAERS Safety Report 8422563-1 (Version None)
Quarter: 2012Q2

REPORT INFORMATION
  Report Type: 
  Country: None (occurrence: None)
  Receive Date: 20120604
  Receipt Date: 20120518
  Transmission Date: 20120825
  Serious: Yes (Hospitalization, Other)
  Sender: FDA-Public Use
  Company Number: CIP11001508

PATIENT
  Age: 58 Year
  Sex: Female
  Weight: 56.246 kg

DRUGS (10)
  1. BONIVA [Suspect]
     Indication: OSTEOPOROSIS
     Dosage: DOSAGE/ REGIMEN UNKNOWN
  2. ACTONEL [Suspect]
     Indication: OSTEOPOROSIS
     Dosage: 35 MG ONCE WEEKLY, ORAL
     Route: 048
     Dates: start: 20080401, end: 20100201
  3. FOSAMAX [Suspect]
     Indication: OSTEOPOROSIS
     Dosage: DOSAGE/ REGIMEN UNKNOWN, ORAL    70 MG ONCE WEEKLY
     Route: 048
     Dates: start: 20020201
  4. FOSAMAX [Suspect]
     Indication: OSTEOPOROSIS
     Dosage: DOSAGE/ REGIMEN UNKNOWN, ORAL    70 MG ONCE WEEKLY
     Route: 048
     Dates: start: 20031230, end: 20080401
  5. CLARITIN-D [Concomitant]
  6. NASONEX [Concomitant]
  7. CALCIUM + VITAMIN D   /01483701/  (CALCIUM, COLECALCIFEROL) [Concomitant]
  8. FOSAMAX PLUS D [Suspect]
     Indication: OSTEOPOROSIS
     Dosage: DOSAGE / REGIMEN UNKNOWN, ORAL
     Route: 048
  9. LOVASTATIN [Concomitant]
  10. OXYCODONE  / ACETAMINOPHEN (OXYCODONE HYDROCHLORIDE, PARACETAMOL) [Concomitant]

REACTIONS (11)
  - FRACTURE DISPLACEMENT [None]
  - FEMUR FRACTURE [None]
  - DRUG INTOLERANCE [None]
  - STRESS FRACTURE [None]
  - LOW TURNOVER OSTEOPATHY [None]
  - OSTEOPOROSIS [None]
  - TOXICITY TO VARIOUS AGENTS [None]
  - DRUG INEFFECTIVE [None]
  - PAIN [None]
  - SKELETAL INJURY [None]
  - CONDITION AGGRAVATED [None]
